FAERS Safety Report 7530494-4 (Version None)
Quarter: 2011Q2

REPORT INFORMATION
  Report Type: 
  Country: None (occurrence: None)
  Receive Date: 20110607
  Receipt Date: 20110602
  Transmission Date: 20111010
  Serious: Yes (Other)
  Sender: FDA-Public Use
  Company Number: ES-ABBOTT-11P-144-0729741-00

PATIENT
  Age: 54 Year
  Sex: Male

DRUGS (3)
  1. METOTREXATE [Concomitant]
     Indication: PSORIASIS
     Dates: start: 20110201, end: 20110501
  2. HUMIRA [Suspect]
     Route: 058
     Dates: start: 20110501
  3. HUMIRA [Suspect]
     Indication: PSORIASIS
     Route: 058
     Dates: start: 20100101, end: 20110201

REACTIONS (1)
  - BENIGN SALIVARY GLAND NEOPLASM [None]
